FAERS Safety Report 5324480-2 (Version None)
Quarter: 2007Q2

REPORT INFORMATION
  Report Type: 
  Country: None (occurrence: None)
  Receive Date: 20070508
  Receipt Date: 20070420
  Transmission Date: 20071010
  Serious: Yes (Hospitalization)
  Sender: FDA-Public Use
  Company Number: 2007JP001145

PATIENT
  Age: 14 Year
  Sex: Male

DRUGS (5)
  1. PROGRAF [Suspect]
     Indication: DERMATITIS ATOPIC
     Dosage: 0.03%, TOPICAL
     Route: 061
     Dates: start: 20040309, end: 20070301
  2. ZITHROMAC (AZITHROMYCIN) [Concomitant]
  3. ALESION (EPINASTINE HYDROCHLORIDE) [Concomitant]
  4. FOSMICIN (FOSFOMYCIN CALCIUM) [Concomitant]
  5. FUCIDIN LEO OINTMENT [Concomitant]

REACTIONS (1)
  - KAPOSI'S VARICELLIFORM ERUPTION [None]
